FAERS Safety Report 5711058-1 (Version None)
Quarter: 2008Q2

REPORT INFORMATION
  Report Type: 
  Country: None (occurrence: None)
  Receive Date: 20080421
  Receipt Date: 20080411
  Transmission Date: 20081010
  Serious: Yes (Life-Threatening, Hospitalization, Other)
  Sender: FDA-Public Use
  Company Number: JP-BRISTOL-MYERS SQUIBB COMPANY-14018055

PATIENT
  Age: 50 Year
  Sex: Male

DRUGS (3)
  1. MITOMYCIN [Suspect]
     Indication: HEPATIC CANCER METASTATIC
     Route: 013
     Dates: start: 20010912, end: 20020520
  2. FLUOROURACIL [Suspect]
     Indication: HEPATIC CANCER METASTATIC
     Route: 013
     Dates: start: 20010912, end: 20020520
  3. EPIRUBICIN HCL [Suspect]
     Indication: HEPATIC CANCER METASTATIC
     Route: 013
     Dates: start: 20010912, end: 20020520

REACTIONS (2)
  - CHOLANGITIS SCLEROSING [None]
  - LIVER ABSCESS [None]
